FAERS Safety Report 10408575 (Version 1)
Quarter: 2014Q3

REPORT INFORMATION
  Report Type: Report from Study
  Country: US (occurrence: US)
  Receive Date: 20140826
  Receipt Date: 20140826
  Transmission Date: 20150326
  Serious: Yes (Other)
  Sender: FDA-Public Use
  Company Number: PHEH2014US016813

PATIENT
  Age: 54 Year
  Sex: Female

DRUGS (6)
  1. AFINITOR [Suspect]
     Active Substance: EVEROLIMUS
     Dosage: 10 MG, ONCE DAILY
     Route: 048
  2. L-LYSINE [Concomitant]
     Active Substance: LYSINE
  3. ECHINACEA [Concomitant]
     Active Substance: ECHINACEA, UNSPECIFIED
  4. MESALAMINE. [Concomitant]
     Active Substance: MESALAMINE
  5. TRAMADOL [Concomitant]
     Active Substance: TRAMADOL
  6. NAPROXEN. [Concomitant]
     Active Substance: NAPROXEN

REACTIONS (5)
  - Fall [Unknown]
  - Anxiety [Unknown]
  - Renal cell carcinoma recurrent [Unknown]
  - Depression [Unknown]
  - Back pain [Unknown]

NARRATIVE: CASE EVENT DATE: 201310
